FAERS Safety Report 6248587-0 (Version None)
Quarter: 2009Q2

REPORT INFORMATION
  Report Type: 
  Country: None (occurrence: None)
  Receive Date: 20090624
  Receipt Date: 20090609
  Transmission Date: 20091009
  Serious: Yes (Hospitalization, Other)
  Sender: FDA-Public Use
  Company Number: 2009S1004144

PATIENT
  Age: 65 Year
  Sex: Female

DRUGS (6)
  1. PHOSPHOSODA FLAVOR NOT SPECIFIED [Suspect]
     Indication: COLONOSCOPY
     Dosage: PO
     Route: 048
     Dates: start: 20080720, end: 20080720
  2. AVALIDE [Concomitant]
  3. SIMVASTATIN [Concomitant]
  4. TYLENOL (CAPLET) [Concomitant]
  5. DILTIAZEM [Concomitant]
  6. ATENOLOL [Concomitant]

REACTIONS (9)
  - ANAEMIA [None]
  - DEHYDRATION [None]
  - ESSENTIAL HYPERTENSION [None]
  - INTRA-ABDOMINAL PRESSURE INCREASED [None]
  - METABOLIC ACIDOSIS [None]
  - POST PROCEDURAL COMPLICATION [None]
  - PROCEDURAL VOMITING [None]
  - RENAL FAILURE ACUTE [None]
  - RENAL FAILURE CHRONIC [None]
